FAERS Safety Report 7237456-5 (Version None)
Quarter: 2011Q1

REPORT INFORMATION
  Report Type: 
  Country: None (occurrence: None)
  Receive Date: 20110121
  Receipt Date: 20110111
  Transmission Date: 20110831
  Serious: Yes (Other)
  Sender: FDA-Public Use
  Company Number: DE-JNJFOC-20110102953

PATIENT
  Sex: Male

DRUGS (1)
  1. INFLIXIMAB, RECOMBINANT [Suspect]
     Indication: COLITIS ULCERATIVE
     Dosage: INITIALLY RECEIVED INDUCTION DOSES AT WEEKS 0, 2 AND 6
     Route: 042

REACTIONS (2)
  - LUPUS-LIKE SYNDROME [None]
  - CLOSTRIDIAL INFECTION [None]
